FAERS Safety Report 9460680 (Version 1)
Quarter: 2013Q3

REPORT INFORMATION
  Report Type: Spontaneous
  Country: IN (occurrence: None)
  Receive Date: 20130813
  Receipt Date: 20130813
  Transmission Date: 20140515
  Serious: Yes (Life-Threatening, Hospitalization)
  Sender: FDA-Public Use
  Company Number: 2013P1017306

PATIENT
  Age: 41 Year
  Sex: Female

DRUGS (3)
  1. TRANEXAMIC ACID [Suspect]
  2. MEFENAMIC ACID [Suspect]
  3. AMLODIPINE 5 (MG+ATENIOLOL 50) [Concomitant]

REACTIONS (4)
  - Pallor [None]
  - Blood pressure increased [None]
  - Myocardial infarction [None]
  - Coronary artery thrombosis [None]
